FAERS Safety Report 15975407 (Version 3)
Quarter: 2020Q1

REPORT INFORMATION
  Report Type: Spontaneous
  Country: JP (occurrence: JP)
  Receive Date: 20190218
  Receipt Date: 20200221
  Transmission Date: 20200409
  Serious: Yes (Hospitalization, Disabling)
  Sender: FDA-Public Use
  Company Number: JP-ELI_LILLY_AND_COMPANY-JP201902003378

PATIENT
  Age: 83 Year
  Sex: Male
  Weight: 65 kg

DRUGS (16)
  1. ZALUTIA [Suspect]
     Active Substance: TADALAFIL
     Dosage: 5 MG, DAILY
     Route: 048
     Dates: end: 20200117
  2. TOVIAZ [Concomitant]
     Active Substance: FESOTERODINE FUMARATE
  3. MEMARY [Concomitant]
     Active Substance: MEMANTINE HYDROCHLORIDE
     Route: 048
  4. AMLODIPINE [Concomitant]
     Active Substance: AMLODIPINE BESYLATE
  5. CABAGIN U [Concomitant]
  6. ANGELICA ACUTILOBA ROOT;ATRACTYLODES SPP. RHI [Concomitant]
  7. FUROSEMIDE. [Concomitant]
     Active Substance: FUROSEMIDE
  8. MAGMITT [Concomitant]
     Active Substance: MAGNESIUM OXIDE
  9. RIVASTIGMINE. [Concomitant]
     Active Substance: RIVASTIGMINE
     Route: 062
  10. LANSOPRAZOLE. [Concomitant]
     Active Substance: LANSOPRAZOLE
     Route: 048
  11. CLOPIDOGREL SULFATE [Concomitant]
     Active Substance: CLOPIDOGREL BISULFATE
  12. ROSUVASTATIN. [Concomitant]
     Active Substance: ROSUVASTATIN
  13. ARGAMATE [Concomitant]
     Active Substance: CALCIUM POLYSTYRENE SULFONATE
     Route: 048
  14. ZALUTIA [Suspect]
     Active Substance: TADALAFIL
     Indication: BENIGN PROSTATIC HYPERPLASIA
     Dosage: 5 MG, DAILY
     Route: 048
     Dates: end: 20181108
  15. CARVEDILOL. [Concomitant]
     Active Substance: CARVEDILOL
  16. PITAVASTATIN CA [Concomitant]
     Active Substance: PITAVASTATIN CALCIUM

REACTIONS (2)
  - Cerebral infarction [Recovering/Resolving]
  - Cerebral infarction [Recovered/Resolved with Sequelae]

NARRATIVE: CASE EVENT DATE: 20181108
